FAERS Safety Report 7408629-3 (Version None)
Quarter: 2011Q2

REPORT INFORMATION
  Report Type: 
  Country: None (occurrence: None)
  Receive Date: 20110412
  Receipt Date: 20110404
  Transmission Date: 20111010
  Serious: No
  Sender: FDA-Public Use
  Company Number: PHHY2011US28675

PATIENT
  Sex: Female
  Weight: 90.703 kg

DRUGS (7)
  1. ZOCOR [Concomitant]
  2. ZANTAC [Concomitant]
  3. MOTRIN [Concomitant]
  4. MULTI-VITAMINS [Concomitant]
  5. TASIGNA [Suspect]
     Dosage: 300 MG, BID
     Route: 048
     Dates: start: 20100721
  6. METFORMIN HCL [Concomitant]
  7. CLARITIN [Concomitant]

REACTIONS (1)
  - LABELLED DRUG-FOOD INTERACTION MEDICATION ERROR [None]
